FAERS Safety Report 15309789 (Version 1)
Quarter: 2018Q3

REPORT INFORMATION
  Report Type: Spontaneous
  Country: US (occurrence: US)
  Receive Date: 20180812
  Receipt Date: 20180812
  Transmission Date: 20181010
  Serious: Yes (Disabling, Other)
  Sender: FDA-Public Use
  Company Number: None

PATIENT
  Age: 38 Year
  Sex: Male
  Weight: 76.5 kg

DRUGS (1)
  1. FINASTERIDE. [Suspect]
     Active Substance: FINASTERIDE
     Indication: ANDROGENETIC ALOPECIA
     Dosage: ?          QUANTITY:90 TABLET(S);?
     Route: 060
     Dates: start: 20140915, end: 20170920

REACTIONS (8)
  - Migraine [None]
  - Mass [None]
  - Heat stroke [None]
  - Vomiting [None]
  - Insomnia [None]
  - Fatigue [None]
  - Nausea [None]
  - Pain [None]

NARRATIVE: CASE EVENT DATE: 20151205
